FAERS Safety Report 6136605-X (Version None)
Quarter: 2009Q1

REPORT INFORMATION
  Report Type: 
  Country: None (occurrence: None)
  Receive Date: 20090325
  Receipt Date: 20090310
  Transmission Date: 20090719
  Serious: Yes (Hospitalization)
  Sender: FDA-Public Use
  Company Number: D-09-0018

PATIENT
  Age: 63 Year
  Sex: Female

DRUGS (7)
  1. JANTOVEN [Suspect]
     Indication: ATRIAL FIBRILLATION
     Dosage: 20MG, QD, PO
     Route: 048
     Dates: start: 20090205, end: 20090207
  2. JANTOVEN [Suspect]
     Indication: ATRIAL FIBRILLATION
     Dosage: 4MG, QD, PO
     Route: 048
     Dates: end: 20090204
  3. ESTRADIOL [Concomitant]
  4. MEDROXYPROGESTERONE [Concomitant]
  5. WELLBUTRIN SR [Concomitant]
  6. METOPROLOL [Concomitant]
  7. TIKOSYN [Concomitant]

REACTIONS (6)
  - ABDOMINAL PAIN [None]
  - BLOOD URINE PRESENT [None]
  - INCORRECT DOSE ADMINISTERED [None]
  - INFLAMMATION [None]
  - INTERNATIONAL NORMALISED RATIO INCREASED [None]
  - RENAL DISORDER [None]
